FAERS Safety Report 7268588-3 (Version None)
Quarter: 2011Q1

REPORT INFORMATION
  Report Type: 
  Country: None (occurrence: None)
  Receive Date: 20110201
  Receipt Date: 20101217
  Transmission Date: 20110831
  Serious: Yes (Hospitalization, Other)
  Sender: FDA-Public Use
  Company Number: US-BAYER-201013347NA

PATIENT
  Sex: Female
  Weight: 60 kg

DRUGS (15)
  1. YAZ [Suspect]
     Indication: CONTRACEPTION
  2. YASMIN [Suspect]
     Indication: PROPHYLAXIS
     Dosage: AS USED DOSE: UN
     Route: 048
  3. SOLU-MEDROL [Concomitant]
     Route: 042
     Dates: start: 20080601
  4. MINOCYCLINE HCL [Concomitant]
     Route: 065
     Dates: start: 19990101, end: 20070615
  5. ASPIRIN [Concomitant]
     Route: 048
     Dates: start: 20080601
  6. AMBIEN [Concomitant]
     Indication: SLEEP DISORDER
     Route: 065
     Dates: start: 20080601
  7. YAZ [Suspect]
     Indication: SLEEP DISORDER
     Route: 048
     Dates: start: 20070101, end: 20080601
  8. TYLENOL W/ CODEINE NO. 3 [Concomitant]
     Route: 065
     Dates: start: 20080601
  9. XANAX [Concomitant]
     Route: 065
     Dates: start: 20080601
  10. YASMIN [Suspect]
     Indication: ACNE
  11. ZOLPIDEM TARTRATE [Concomitant]
     Route: 065
     Dates: start: 20080601, end: 20080601
  12. NOVOLOG [Concomitant]
     Route: 065
     Dates: start: 20080601, end: 20080601
  13. DORYX [Concomitant]
     Indication: ACNE
     Route: 065
     Dates: start: 20091101, end: 20100101
  14. ALPRAZOLAM [Concomitant]
     Indication: ANXIETY
     Route: 065
     Dates: start: 20080601, end: 20080601
  15. PROTONIX [Concomitant]
     Route: 065
     Dates: start: 20080601, end: 20080601

REACTIONS (1)
  - IIIRD NERVE PARALYSIS [None]
